FAERS Safety Report 23732499 (Version 1)
Quarter: 2024Q2

REPORT INFORMATION
  Report Type: Spontaneous
  Country: US (occurrence: US)
  Receive Date: 20240411
  Receipt Date: 20240411
  Transmission Date: 20240716
  Serious: No
  Sender: FDA-Public Use
  Company Number: US-SA-SAC20240404001182

PATIENT
  Sex: Male

DRUGS (1)
  1. DUPIXENT [Suspect]
     Active Substance: DUPILUMAB
     Indication: Dermatitis atopic
     Dosage: 300 MG , EVERY 14 DAYS
     Route: 058
     Dates: start: 202204

REACTIONS (4)
  - Chills [Unknown]
  - Nausea [Unknown]
  - Vision blurred [Unknown]
  - Headache [Unknown]
